FAERS Safety Report 8963327 (Version 3)
Quarter: 2013Q1

REPORT INFORMATION
  Report Type: Spontaneous
  Country: TR (occurrence: TR)
  Receive Date: 20121214
  Receipt Date: 20130103
  Transmission Date: 20140127
  Serious: Yes (Hospitalization)
  Sender: FDA-Public Use
  Company Number: TR-JNJFOC-20121202452

PATIENT
  Age: 39 Year
  Sex: Female
  Weight: 85 kg

DRUGS (2)
  1. RISPERDAL CONSTA [Suspect]
     Indication: SCHIZOPHRENIA
     Route: 030
  2. AN UNKNOWN MEDICATION [Suspect]
     Indication: WEIGHT DECREASED
     Route: 065

REACTIONS (4)
  - Drug effect incomplete [Recovered/Resolved]
  - Treatment noncompliance [Recovered/Resolved]
  - Weight increased [Recovered/Resolved]
  - Liver function test abnormal [Recovered/Resolved]
